FAERS Safety Report 5209618-X (Version None)
Quarter: 2007Q1

REPORT INFORMATION
  Report Type: 
  Country: None (occurrence: None)
  Receive Date: 20070111
  Receipt Date: 20070103
  Transmission Date: 20070707
  Serious: Yes (Hospitalization)
  Sender: FDA-Public Use
  Company Number: GXKR2007GB00480

PATIENT
  Age: 86 Year
  Sex: Male

DRUGS (8)
  1. ACETYLSALICYLIC ACID [Suspect]
     Indication: PROPHYLAXIS
     Dosage: 75 MG QD ORAL
     Route: 048
     Dates: start: 20060817
  2. CLEXANE           (ENOXAPARIN SODIUM, HEPARIN-FRACTION, SODIUM SALT) [Suspect]
     Dosage: 60 MG. BID, SUBCUTANEOUS
     Route: 058
     Dates: start: 20060816, end: 20060901
  3. CLOPIDOGREL [Suspect]
     Indication: PROPHYLAXIS
     Dosage: 75 MG, UNK, ORAL
     Route: 048
     Dates: start: 20060817
  4. DEXAMETHASONE TAB [Suspect]
     Dosage: 2 MG, QD
     Dates: start: 20060829, end: 20060831
  5. BISOPROLOL FUMARATE [Concomitant]
  6. FUROSEMIDE [Concomitant]
  7. ISOSORBIDE MONONITRATE [Concomitant]
  8. METRONIDAZOLE [Concomitant]

REACTIONS (1)
  - HAEMATURIA [None]
